FAERS Safety Report 5159366-X (Version None)
Quarter: 2006Q4

REPORT INFORMATION
  Report Type: 
  Country: None (occurrence: None)
  Receive Date: 20061120
  Receipt Date: 20061110
  Transmission Date: 20070319
  Serious: Yes (Hospitalization)
  Sender: FDA-Public Use
  Company Number: CIO06015900

PATIENT
  Age: 53 Year
  Sex: Male
  Weight: 113.4 kg

DRUGS (2)
  1. METAMUCIL SUGAR-FREE SMOOTH TEXTURE, ORANGE FLAVOR (PSYLLIUM HYDROPHIL [Suspect]
     Indication: CHANGE OF BOWEL HABIT
     Dosage: ORAL
     Route: 048
     Dates: start: 20041110, end: 20061102
  2. ANTIHYPERTENSIVES [Concomitant]

REACTIONS (3)
  - ABDOMINAL DISTENSION [None]
  - INTESTINAL OBSTRUCTION [None]
  - VOMITING [None]
